FAERS Safety Report 17063220 (Version 2)
Quarter: 2020Q1

REPORT INFORMATION
  Report Type: Spontaneous
  Country: US (occurrence: US)
  Receive Date: 20191122
  Receipt Date: 20200130
  Transmission Date: 20200409
  Serious: Yes (Other)
  Sender: FDA-Public Use
  Company Number: US-BAYER-2019-211298

PATIENT
  Age: 21 Year
  Sex: Female

DRUGS (1)
  1. KYLEENA [Suspect]
     Active Substance: LEVONORGESTREL
     Indication: CONTRACEPTION
     Dosage: 17.5 MCG/24HR, CONT
     Route: 015
     Dates: start: 20190723, end: 20190927

REACTIONS (4)
  - Device use issue [None]
  - Device dislocation [Recovered/Resolved]
  - Abdominal pain lower [None]
  - Ovarian cyst [None]

NARRATIVE: CASE EVENT DATE: 20190913
